FAERS Safety Report 23060591 (Version 1)
Quarter: 2023Q4

REPORT INFORMATION
  Report Type: Report from Study
  Country: CA (occurrence: CA)
  Receive Date: 20231012
  Receipt Date: 20231012
  Transmission Date: 20240109
  Serious: Yes (Other)
  Sender: FDA-Public Use
  Company Number: CA-AKCEA THERAPEUTICS, INC.-2022IS004340

PATIENT

DRUGS (11)
  1. TEGSEDI [Suspect]
     Active Substance: INOTERSEN SODIUM
     Indication: Hereditary neuropathic amyloidosis
     Dosage: 284 MILLIGRAM,QOW
     Route: 058
     Dates: start: 20220715
  2. TEGSEDI [Suspect]
     Active Substance: INOTERSEN SODIUM
     Dosage: 284 MILLIGRAM, BI-WEEKLY
     Route: 058
  3. TEGSEDI [Suspect]
     Active Substance: INOTERSEN SODIUM
     Dosage: 284 MILLIGRAM, QOW
     Route: 058
     Dates: start: 20220715
  4. TEGSEDI [Suspect]
     Active Substance: INOTERSEN SODIUM
     Dosage: 284 MILLIGRAM, QOW
     Route: 058
  5. TEGSEDI [Suspect]
     Active Substance: INOTERSEN SODIUM
     Dosage: 284 MILLIGRAM, QOW
     Route: 058
  6. TEGSEDI [Suspect]
     Active Substance: INOTERSEN SODIUM
     Dosage: 284 MILLIGRAM, BI-WEEKLY
     Route: 058
     Dates: start: 20230222, end: 20230317
  7. UNSPECIFIED INGREDIENT [Concomitant]
     Active Substance: UNSPECIFIED INGREDIENT
     Indication: Product used for unknown indication
     Dosage: UNK
     Route: 065
  8. ONPATTRO [Concomitant]
     Active Substance: PATISIRAN SODIUM
     Indication: Product used for unknown indication
     Dosage: UNK
     Route: 042
     Dates: start: 2020, end: 2021
  9. VITAMIN A [Concomitant]
     Active Substance: VITAMIN A
     Indication: Product used for unknown indication
     Dosage: UNK
     Route: 065
  10. ANTICOAGULANT III [Concomitant]
     Indication: Blood disorder
     Dosage: UNK
     Route: 065
     Dates: start: 202202
  11. PREGABALIN [Concomitant]
     Active Substance: PREGABALIN
     Indication: Pain
     Dosage: UNK, QD
     Route: 048

REACTIONS (57)
  - Platelet count decreased [Not Recovered/Not Resolved]
  - White blood cell count decreased [Not Recovered/Not Resolved]
  - Lymphocyte count decreased [Not Recovered/Not Resolved]
  - Red blood cell burr cells present [Recovered/Resolved]
  - Red blood cell elliptocytes present [Recovered/Resolved]
  - Polychromasia [Recovered/Resolved]
  - Disease progression [Not Recovered/Not Resolved]
  - Hand deformity [Not Recovered/Not Resolved]
  - Pain [Not Recovered/Not Resolved]
  - Haemoglobin decreased [Not Recovered/Not Resolved]
  - Neutrophil count decreased [Recovered/Resolved]
  - Aspartate aminotransferase increased [Recovered/Resolved]
  - Haematocrit decreased [Recovered/Resolved]
  - Platelet morphology abnormal [Not Recovered/Not Resolved]
  - Mean cell haemoglobin concentration decreased [Recovered/Resolved]
  - Influenza [Not Recovered/Not Resolved]
  - Red blood cell target cells present [Recovered/Resolved]
  - Red blood cell rouleaux formation present [Recovered/Resolved]
  - Loss of personal independence in daily activities [Not Recovered/Not Resolved]
  - Gait disturbance [Not Recovered/Not Resolved]
  - Dry mouth [Unknown]
  - Headache [Unknown]
  - Lethargy [Unknown]
  - Vision blurred [Unknown]
  - Syncope [Unknown]
  - Dyspnoea [Unknown]
  - Dizziness [Not Recovered/Not Resolved]
  - Presyncope [Not Recovered/Not Resolved]
  - Protein total increased [Unknown]
  - Urine protein/creatinine ratio increased [Unknown]
  - Protein urine present [Unknown]
  - Product use issue [Not Recovered/Not Resolved]
  - Anxiety [Not Recovered/Not Resolved]
  - Product dose omission issue [Not Recovered/Not Resolved]
  - Hypoaesthesia [Not Recovered/Not Resolved]
  - Lacrimation increased [Not Recovered/Not Resolved]
  - Platelet aggregation increased [Unknown]
  - Asthenia [Unknown]
  - Dysphonia [Unknown]
  - Abdominal discomfort [Unknown]
  - Vitamin A decreased [Unknown]
  - Blood pressure increased [Unknown]
  - Fatigue [Unknown]
  - Feeling abnormal [Not Recovered/Not Resolved]
  - Blood disorder [Unknown]
  - Abdominal pain upper [Unknown]
  - Abdominal distension [Unknown]
  - Peripheral swelling [Not Recovered/Not Resolved]
  - Mobility decreased [Unknown]
  - Arthralgia [Not Recovered/Not Resolved]
  - Grip strength decreased [Unknown]
  - Thrombocytopenia [Unknown]
  - Muscle spasms [Not Recovered/Not Resolved]
  - Depression [Not Recovered/Not Resolved]
  - Discouragement [Not Recovered/Not Resolved]
  - Haematocrit decreased [Unknown]
  - Mean cell haemoglobin decreased [Unknown]

NARRATIVE: CASE EVENT DATE: 20220715
